FAERS Safety Report 19611400 (Version 3)
Quarter: 2021Q4

REPORT INFORMATION
  Report Type: Spontaneous
  Country: US (occurrence: US)
  Receive Date: 20210726
  Receipt Date: 20211028
  Transmission Date: 20220303
  Serious: Yes (Death, Hospitalization)
  Sender: FDA-Public Use
  Company Number: US-KARYOPHARM-2021KPT000905

PATIENT

DRUGS (1)
  1. XPOVIO [Suspect]
     Active Substance: SELINEXOR
     Indication: Plasma cell myeloma
     Dosage: 80 MG, WEEKLY
     Route: 048
     Dates: start: 20210702, end: 20210717

REACTIONS (7)
  - Death [Fatal]
  - Tumour lysis syndrome [Unknown]
  - Dysgeusia [Unknown]
  - Dry mouth [Unknown]
  - Joint swelling [Unknown]
  - Micturition urgency [Unknown]
  - Nausea [Unknown]

NARRATIVE: CASE EVENT DATE: 20210701
